FAERS Safety Report 25600551 (Version 1)
Quarter: 2025Q3

REPORT INFORMATION
  Report Type: Spontaneous
  Country: US (occurrence: US)
  Receive Date: 20250724
  Receipt Date: 20250724
  Transmission Date: 20251021
  Serious: Yes (Other)
  Sender: ALEXION PHARMACEUTICALS
  Company Number: US-ASTRAZENECA-202507GLO012343US

PATIENT
  Age: 70 Year
  Sex: Male
  Weight: 43.2 kg

DRUGS (10)
  1. NEXIUM [Suspect]
     Active Substance: ESOMEPRAZOLE MAGNESIUM
     Dosage: 400 MILLIGRAM, BID
  2. BISACODYL [Concomitant]
     Active Substance: BISACODYL
  3. DONEPEZIL [Concomitant]
     Active Substance: DONEPEZIL
  4. JARDIANCE [Concomitant]
     Active Substance: EMPAGLIFLOZIN
  5. METFORMIN [Concomitant]
     Active Substance: METFORMIN HYDROCHLORIDE
  6. RIVASTIGMINE [Concomitant]
     Active Substance: RIVASTIGMINE
  7. LOSARTAN [Concomitant]
     Active Substance: LOSARTAN
  8. SODIUM FLUORIDE [Concomitant]
     Active Substance: SODIUM FLUORIDE
  9. SIMETHICONE (DIMETHICONE) [Concomitant]
     Active Substance: DIMETHICONE
  10. FLOMAX [Concomitant]
     Active Substance: TAMSULOSIN HYDROCHLORIDE

REACTIONS (1)
  - Gastric cancer [Unknown]

NARRATIVE: CASE EVENT DATE: 20200822
